FAERS Safety Report 4540988-1 (Version None)
Quarter: 2004Q4

REPORT INFORMATION
  Report Type: 
  Country: None (occurrence: None)
  Receive Date: 20041228
  Receipt Date: 20041214
  Transmission Date: 20050328
  Serious: No
  Sender: FDA-Public Use
  Company Number: 2004AC01055

PATIENT
  Age: 55 Year
  Sex: Female
  Weight: 75 kg

DRUGS (4)
  1. ROPIVACAINE [Suspect]
     Indication: ANAESTHESIA
     Dosage: 2 ML ONCE PNEU
  2. ROPIVACAINE [Suspect]
     Indication: ANAESTHESIA
     Dosage: 6 ML ONCE PNEU
  3. ROPIVACAINE [Suspect]
     Indication: ANAESTHESIA
     Dosage: 3 ML ONCE PNEU
  4. ROPIVACAINE [Suspect]
     Indication: ANAESTHESIA
     Dosage: 3 ML ONCE PNEU

REACTIONS (4)
  - CLONUS [None]
  - DEPRESSED LEVEL OF CONSCIOUSNESS [None]
  - DYSPHEMIA [None]
  - SPEECH DISORDER [None]
